FAERS Safety Report 14492016 (Version 1)
Quarter: 2018Q1

REPORT INFORMATION
  Report Type: Spontaneous
  Country: AU (occurrence: AU)
  Receive Date: 20180206
  Receipt Date: 20180206
  Transmission Date: 20180509
  Serious: Yes (Other)
  Sender: FDA-Public Use
  Company Number: AU-JNJFOC-20180201800

PATIENT
  Sex: Female

DRUGS (1)
  1. RISPERDAL CONSTA [Suspect]
     Active Substance: RISPERIDONE
     Indication: INJURY ASSOCIATED WITH DEVICE
     Route: 065

REACTIONS (3)
  - Exposure to contaminated device [Unknown]
  - Injury associated with device [Unknown]
  - Wrong technique in product usage process [Unknown]
